FAERS Safety Report 24902916 (Version 2)
Quarter: 2025Q1

REPORT INFORMATION
  Report Type: Spontaneous
  Country: US (occurrence: US)
  Receive Date: 20250130
  Receipt Date: 20250213
  Transmission Date: 20250409
  Serious: No
  Sender: NOVARTIS
  Company Number: US-002147023-NVSC2025US015035

PATIENT
  Sex: Female

DRUGS (2)
  1. PROMACTA [Suspect]
     Active Substance: ELTROMBOPAG OLAMINE
     Indication: Thrombocytopenia
     Dosage: 50 MG, QD
     Route: 048
     Dates: start: 202501
  2. PROMACTA [Suspect]
     Active Substance: ELTROMBOPAG OLAMINE
     Indication: Anaemia

REACTIONS (7)
  - Pain in extremity [Unknown]
  - Oropharyngeal pain [Unknown]
  - Dry mouth [Unknown]
  - Lip swelling [Unknown]
  - Odynophagia [Unknown]
  - Oral pain [Unknown]
  - Arthralgia [Unknown]
